FAERS Safety Report 6567276-6 (Version None)
Quarter: 2010Q1

REPORT INFORMATION
  Report Type: 
  Country: None (occurrence: None)
  Receive Date: 20100202
  Receipt Date: 20100122
  Transmission Date: 20100710
  Serious: Yes (Death, Hospitalization)
  Sender: FDA-Public Use
  Company Number: FR-ROCHE-607182

PATIENT
  Sex: Male
  Weight: 72 kg

DRUGS (15)
  1. BEVACIZUMAB [Suspect]
     Indication: RECTAL CANCER METASTATIC
     Route: 042
     Dates: start: 20081023, end: 20081023
  2. XELODA [Concomitant]
     Dates: start: 20091023
  3. ATACAND [Concomitant]
     Indication: HYPERTENSION
     Dosage: STOP DATE: END OF 2008.
     Route: 048
     Dates: start: 20000101, end: 20081201
  4. INNOHEP [Concomitant]
     Dates: start: 20090126, end: 20091129
  5. DURAGESIC-100 [Concomitant]
     Indication: PAIN
     Dosage: DRUG: DURAGESIC 250
     Route: 042
     Dates: start: 20081001, end: 20091129
  6. ACTISKENAN [Concomitant]
     Dosage: DRUG: ACTISKEN 10
  7. STILNOX [Concomitant]
  8. MEPRONIZINE [Concomitant]
  9. LYRICA [Concomitant]
     Dosage: DRUG: LYRICA 100
  10. METFORMIN HCL [Concomitant]
     Dosage: DRUG: METFORMINE 1000
  11. ZOLPIDEM [Concomitant]
     Indication: DEPRESSION
     Route: 048
     Dates: start: 20070101, end: 20091129
  12. STABLON [Concomitant]
     Indication: DEPRESSION
     Route: 048
     Dates: start: 20070101, end: 20091129
  13. INIPOMP [Concomitant]
     Indication: PROPHYLAXIS
     Route: 048
     Dates: start: 20070101, end: 20091129
  14. GLUCOPHAGE-RETARD [Concomitant]
     Indication: DIABETES MELLITUS
     Dates: start: 19980101, end: 20091129
  15. DIAMICRON [Concomitant]
     Indication: DIABETES MELLITUS
     Dates: start: 19980101, end: 20091129

REACTIONS (3)
  - ANAEMIA [None]
  - EMBOLISM VENOUS [None]
  - MALIGNANT NEOPLASM PROGRESSION [None]
